FAERS Safety Report 8884758 (Version 3)
Quarter: 2013Q1

REPORT INFORMATION
  Report Type: Report from Study
  Country: US (occurrence: US)
  Receive Date: 20121102
  Receipt Date: 20130110
  Transmission Date: 20140127
  Serious: Yes (Hospitalization)
  Sender: FDA-Public Use
  Company Number: US-JNJFOC-20121016228

PATIENT
  Sex: Male
  Weight: 73.6 kg

DRUGS (7)
  1. REMICADE [Suspect]
     Indication: CROHN^S DISEASE
     Route: 042
     Dates: start: 20071017
  2. HUMIRA [Concomitant]
     Dates: start: 20080630, end: 201205
  3. TYLENOL [Concomitant]
  4. METHOTREXATE [Concomitant]
  5. FOLIC ACID [Concomitant]
  6. TACROLIMUS [Concomitant]
  7. VITAMIN D [Concomitant]

REACTIONS (1)
  - Crohn^s disease [Recovered/Resolved]
